FAERS Safety Report 7419426-7 (Version None)
Quarter: 2011Q2

REPORT INFORMATION
  Report Type: 
  Country: None (occurrence: None)
  Receive Date: 20110417
  Receipt Date: 20110404
  Transmission Date: 20111010
  Serious: Yes (Disabling)
  Sender: FDA-Public Use
  Company Number: GR-MYLANLABS-2011S1007102

PATIENT
  Age: 67 Year
  Sex: Female

DRUGS (5)
  1. METFORMIN [Suspect]
     Indication: DRUG PRESCRIBING ERROR
     Route: 065
     Dates: start: 20050316, end: 20050504
  2. TERAZOSIN [Concomitant]
     Indication: HYPERTENSION
     Route: 065
  3. TEICOPLANIN [Concomitant]
     Indication: INFECTION
     Dosage: 400MG INITIALLY THEN 200MG
     Route: 065
     Dates: start: 20050307
  4. TEICOPLANIN [Concomitant]
     Dosage: 400MG INITIALLY THEN 200MG FOR 7 DAYS
     Route: 065
     Dates: start: 20050307
  5. RAMIPRIL [Concomitant]
     Indication: HYPERTENSION
     Route: 065

REACTIONS (2)
  - HYPOPHOSPHATAEMIA [None]
  - DRUG PRESCRIBING ERROR [None]
